FAERS Safety Report 15361912 (Version 1)
Quarter: 2018Q3

REPORT INFORMATION
  Report Type: Spontaneous
  Country: US (occurrence: US)
  Receive Date: 20180831
  Receipt Date: 20180831
  Transmission Date: 20181010
  Serious: No
  Sender: FDA-Public Use
  Company Number: None

PATIENT
  Age: 38 Year
  Sex: Female
  Weight: 62.1 kg

DRUGS (4)
  1. ASTHMA AND ALLERGY MEDS [Concomitant]
  2. DAILY VITAMIN [Concomitant]
     Active Substance: VITAMINS
  3. NOSE SPRAY [Concomitant]
  4. OCEAN SALINE NASAL SPRAY [Suspect]
     Active Substance: SODIUM CHLORIDE
     Indication: RHINORRHOEA
     Dosage: ?          QUANTITY:2 SPRAY(S);?
     Route: 055
     Dates: start: 20180601, end: 20180831

REACTIONS (1)
  - Ear infection [None]

NARRATIVE: CASE EVENT DATE: 20180726
